FAERS Safety Report 5362704-6 (Version None)
Quarter: 2007Q2

REPORT INFORMATION
  Report Type: 
  Country: None (occurrence: None)
  Receive Date: 20070612
  Receipt Date: 20070601
  Transmission Date: 20071010
  Serious: Yes (Life-Threatening)
  Sender: FDA-Public Use
  Company Number: RENA-12208

PATIENT
  Age: 56 Year
  Sex: Male

DRUGS (11)
  1. RENAGEL [Suspect]
     Indication: HYPERPHOSPHATAEMIA
     Dosage: 0.5 G TID PO
     Route: 048
     Dates: start: 20030806, end: 20031117
  2. RENAGEL [Suspect]
     Indication: HYPERPHOSPHATAEMIA
     Dosage: 0.75 G TID PO
     Route: 048
     Dates: start: 20031117, end: 20040128
  3. RENAGEL [Suspect]
     Indication: HYPERPHOSPHATAEMIA
     Dosage: 1 G TID PO
     Route: 048
     Dates: start: 20040128, end: 20040223
  4. RENAGEL [Suspect]
     Indication: HYPERPHOSPHATAEMIA
     Dosage: 1.25 G TID PO
     Route: 048
     Dates: start: 20040223, end: 20040809
  5. RENAGEL [Suspect]
     Indication: HYPERPHOSPHATAEMIA
     Dosage: 4 G DAILY PO
     Route: 048
     Dates: start: 20040809, end: 20050710
  6. CALTAN (PRECIPITATED CALCIUM CARBONATE) [Concomitant]
  7. ROCALTROL. MFR: HOFFMAN-LA ROCHE, INC. [Concomitant]
  8. BLOPRESS. MFR: TAKEDA CHEMICAL IND. [Concomitant]
  9. ADALAT. MFR: BAYER [Concomitant]
  10. ARTIST. MFR: NOT SPECIFIED [Concomitant]
  11. ULCERMIN. MFR: JABA [Concomitant]

REACTIONS (1)
  - HYPOCHOLESTEROLAEMIA [None]
